FAERS Safety Report 13244851 (Version 3)
Quarter: 2017Q1

REPORT INFORMATION
  Report Type: Spontaneous
  Country: BR (occurrence: BR)
  Receive Date: 20170216
  Receipt Date: 20170321
  Transmission Date: 20170428
  Serious: Yes (Other)
  Sender: FDA-Public Use
  Company Number: BR-AMGEN-BRASP2017024688

PATIENT
  Age: 47 Year
  Sex: Female

DRUGS (1)
  1. ENBREL [Suspect]
     Active Substance: ETANERCEPT
     Indication: PRODUCT USED FOR UNKNOWN INDICATION
     Dosage: UNK
     Route: 065
     Dates: start: 20170207

REACTIONS (12)
  - Drug hypersensitivity [Unknown]
  - Hypertension [Unknown]
  - Headache [Not Recovered/Not Resolved]
  - Cardiac disorder [Unknown]
  - Pyrexia [Recovered/Resolved]
  - Retching [Unknown]
  - Blood pressure fluctuation [Unknown]
  - Visual impairment [Unknown]
  - Swelling [Unknown]
  - Heart rate increased [Unknown]
  - Visual acuity reduced [Unknown]
  - Urinary tract infection [Unknown]

NARRATIVE: CASE EVENT DATE: 2017
